FAERS Safety Report 26010312 (Version 1)
Quarter: 2025Q4

REPORT INFORMATION
  Report Type: Report from Study
  Country: US (occurrence: None)
  Receive Date: 20251107
  Receipt Date: 20251107
  Transmission Date: 20260117
  Serious: Yes (Other)
  Sender: UCB
  Company Number: US-UCBSA-2025068836

PATIENT

DRUGS (1)
  1. BRIVARACETAM [Suspect]
     Active Substance: BRIVARACETAM
     Indication: Epilepsy
     Dosage: 50 MILLIGRAM -1 TAB, 2X/DAY (BID)

REACTIONS (2)
  - Epilepsy [Not Recovered/Not Resolved]
  - Seasonal allergy [Not Recovered/Not Resolved]
